FAERS Safety Report 4588084-1 (Version None)
Quarter: 2005Q1

REPORT INFORMATION
  Report Type: 
  Country: None (occurrence: None)
  Receive Date: 20050216
  Receipt Date: 20050128
  Transmission Date: 20050727
  Serious: Yes (Death)
  Sender: FDA-Public Use
  Company Number: JP_041105199

PATIENT
  Age: 56 Year
  Sex: Male
  Weight: 52 kg

DRUGS (6)
  1. GEMZAR [Suspect]
     Indication: PANCREATIC CARCINOMA STAGE IV
     Dosage: 1000 MG OTHER
     Route: 042
     Dates: start: 20030814, end: 20030828
  2. 5-FU(FLUOROURACYL) [Concomitant]
  3. PANCREATIC CARCINOMA (STAGE IVB) [Concomitant]
     Indication: PANCREATIC CARCINOMA STAGE IV
  4. MS CONTIN [Concomitant]
  5. MAGLAX          (MAGNESIUM OXIDE) [Concomitant]
  6. PURSENNID [Concomitant]

REACTIONS (2)
  - CHOLANGITIS ACUTE [None]
  - CHOLANGITIS SUPPURATIVE [None]
